FAERS Safety Report 16619498 (Version 1)
Quarter: 2019Q3

REPORT INFORMATION
  Report Type: Spontaneous
  Country: DE (occurrence: DE)
  Receive Date: 20190723
  Receipt Date: 20190723
  Transmission Date: 20191004
  Serious: Yes (Other)
  Sender: FDA-Public Use
  Company Number: DE-JNJFOC-20190718354

PATIENT
  Age: 18 Year
  Sex: Female

DRUGS (12)
  1. TOPIRAMATE. [Suspect]
     Active Substance: TOPIRAMATE
     Indication: MYOCLONIC EPILEPSY
  2. VALPROATE [Interacting]
     Active Substance: VALPROIC ACID
     Indication: MYOCLONIC EPILEPSY
  3. TOPIRAMATE. [Suspect]
     Active Substance: TOPIRAMATE
     Indication: LAFORA^S MYOCLONIC EPILEPSY
     Route: 048
  4. VALPROATE [Interacting]
     Active Substance: VALPROIC ACID
     Indication: LAFORA^S MYOCLONIC EPILEPSY
     Route: 065
  5. CLOBAZAM. [Interacting]
     Active Substance: CLOBAZAM
     Indication: MYOCLONIC EPILEPSY
  6. CLOBAZAM. [Interacting]
     Active Substance: CLOBAZAM
     Indication: EPILEPSY
  7. PERAMPANEL [Interacting]
     Active Substance: PERAMPANEL
     Indication: LAFORA^S MYOCLONIC EPILEPSY
     Route: 065
  8. TOPIRAMATE. [Suspect]
     Active Substance: TOPIRAMATE
     Indication: EPILEPSY
  9. CLOBAZAM. [Interacting]
     Active Substance: CLOBAZAM
     Indication: LAFORA^S MYOCLONIC EPILEPSY
     Route: 065
  10. PERAMPANEL [Interacting]
     Active Substance: PERAMPANEL
     Indication: EPILEPSY
  11. PERAMPANEL [Interacting]
     Active Substance: PERAMPANEL
     Indication: MYOCLONIC EPILEPSY
  12. VALPROATE [Interacting]
     Active Substance: VALPROIC ACID
     Indication: EPILEPSY

REACTIONS (4)
  - Drug interaction [Unknown]
  - Seizure [Unknown]
  - Off label use [Unknown]
  - Product use in unapproved indication [Unknown]
